FAERS Safety Report 8517940-4 (Version None)
Quarter: 2012Q3

REPORT INFORMATION
  Report Type: 
  Country: None (occurrence: None)
  Receive Date: 20120718
  Receipt Date: 20110830
  Transmission Date: 20120928
  Serious: No
  Sender: FDA-Public Use
  Company Number: US-BRISTOL-MYERS SQUIBB COMPANY-15928773

PATIENT
  Age: 62 Year
  Sex: Male
  Weight: 109 kg

DRUGS (23)
  1. PLAVIX [Concomitant]
  2. GLIMEPIRIDE [Concomitant]
  3. CYANOCOBALAMIN [Concomitant]
  4. PENTOXIFYLLINE [Concomitant]
  5. LISINOPRIL [Concomitant]
  6. ASPIRIN [Concomitant]
     Dosage: LOW DOSE BAYER ASPIRIN (BABY ASPIRIN)
  7. FOLBIC [Concomitant]
     Dosage: 1DF=1. UNIT NOT SPECIFIED
  8. VITAMIN C TABS [Concomitant]
  9. TESTIM [Concomitant]
     Dosage: 1DF=2 TUBES
  10. METOPROLOL SUCCINATE [Concomitant]
  11. LORATADINE [Concomitant]
     Dosage: 1DF=1. UNIT NOT SPECIFIED
  12. WARFARIN SODIUM [Suspect]
     Route: 048
     Dates: start: 20110718
  13. CITALOPRAM HYDROBROMIDE [Concomitant]
  14. HEPARIN [Concomitant]
     Dates: end: 20110718
  15. BUSPIRONE HCL [Concomitant]
  16. SANDOSTATIN LAR [Concomitant]
  17. PRAVASTATIN [Concomitant]
  18. FENTANYL [Concomitant]
  19. LEVOTHYROXINE SODIUM [Concomitant]
  20. PREDNISONE [Concomitant]
  21. TAMSULOSIN HCL [Concomitant]
  22. NEXIUM [Concomitant]
  23. METFORMIN HYDROCHLORIDE [Concomitant]

REACTIONS (4)
  - NAUSEA [None]
  - ABDOMINAL DISCOMFORT [None]
  - DECREASED APPETITE [None]
  - DYSGEUSIA [None]
